FAERS Safety Report 8032784-8 (Version None)
Quarter: 2012Q1

REPORT INFORMATION
  Report Type: 
  Country: None (occurrence: None)
  Receive Date: 20120110
  Receipt Date: 20120106
  Transmission Date: 20120608
  Serious: Yes (Other)
  Sender: FDA-Public Use
  Company Number: US-PFIZER INC-2012004946

PATIENT
  Sex: Female
  Weight: 63.492 kg

DRUGS (6)
  1. LIPITOR [Suspect]
     Dosage: UNK
     Route: 048
  2. LORAZEPAM [Concomitant]
     Dosage: 0.5 MG, 1X/DAY
  3. VITAMIN TAB [Concomitant]
     Dosage: UNK
  4. LIPITOR [Suspect]
     Dosage: 80 MG, 1X/DAY
     Route: 048
     Dates: start: 20110901
  5. METOPROLOL [Concomitant]
     Dosage: UNK
  6. OMEPRAZOLE [Concomitant]
     Dosage: 20 MG, 1X/DAY

REACTIONS (5)
  - FOOT DEFORMITY [None]
  - CORONARY ARTERY OCCLUSION [None]
  - MUSCLE SPASMS [None]
  - MYOCARDIAL INFARCTION [None]
  - MYALGIA [None]
